FAERS Safety Report 10758817 (Version 1)
Quarter: 2015Q1

REPORT INFORMATION
  Report Type: Spontaneous
  Country: US (occurrence: None)
  Receive Date: 20150123
  Receipt Date: 20150123
  Transmission Date: 20150721
  Serious: No
  Sender: FDA-Public Use
  Company Number: TPA2013A01767

PATIENT
  Age: 72 Year
  Sex: Female
  Weight: 70 kg

DRUGS (13)
  1. CALCIUM [Concomitant]
     Active Substance: CALCIUM
  2. PANTOPRAZOLE [Concomitant]
     Active Substance: PANTOPRAZOLE SODIUM
  3. EPOGEN [Concomitant]
     Active Substance: ERYTHROPOIETIN
  4. SERTRALINE [Concomitant]
     Active Substance: SERTRALINE HYDROCHLORIDE
  5. FLEXERIL [Concomitant]
     Active Substance: CYCLOBENZAPRINE HYDROCHLORIDE
  6. ASPIRIN (ACETYLSALICYLIC ACID) [Concomitant]
     Active Substance: ASPIRIN
  7. SIMVASTATIN. [Concomitant]
     Active Substance: SIMVASTATIN
  8. HEPARIN [Concomitant]
     Active Substance: HEPARIN SODIUM
  9. BODY QUEST ICE-CREAM (PROTEIN SUPPLEMENTS) [Concomitant]
  10. TRAZODONE [Concomitant]
     Active Substance: TRAZODONE HYDROCHLORIDE
  11. OMONTYS [Suspect]
     Active Substance: PEGINESATIDE
     Indication: NEPHROGENIC ANAEMIA
     Dosage: 1 IN 4 WK
     Route: 042
     Dates: start: 20130212, end: 20130212
  12. VENOFER (SACCHARATED IRON OXIDE) [Concomitant]
  13. CARVEDILOL. [Concomitant]
     Active Substance: CARVEDILOL

REACTIONS (7)
  - Diarrhoea [None]
  - Dyspnoea [None]
  - Hypoaesthesia [None]
  - Nausea [None]
  - Chest pain [None]
  - Vomiting [None]
  - Pruritus [None]

NARRATIVE: CASE EVENT DATE: 20130212
